FAERS Safety Report 13294681 (Version 1)
Quarter: 2017Q1

REPORT INFORMATION
  Report Type: Spontaneous
  Country: KR (occurrence: KR)
  Receive Date: 20170303
  Receipt Date: 20170303
  Transmission Date: 20170428
  Serious: Yes (Other)
  Sender: FDA-Public Use
  Company Number: KR-FRESENIUS KABI-FK201701881

PATIENT
  Age: 36 Year
  Sex: Female

DRUGS (2)
  1. DOXORUBICIN (MANUFACTURER UNKNOWN) [Suspect]
     Active Substance: DOXORUBICIN
     Indication: BREAST CANCER
     Route: 042
  2. CYCLOPHOSPHAMIDE. [Suspect]
     Active Substance: CYCLOPHOSPHAMIDE
     Indication: BREAST CANCER
     Route: 042

REACTIONS (2)
  - Breast calcifications [Unknown]
  - Intraductal proliferative breast lesion [Unknown]
